FAERS Safety Report 4804491-3 (Version None)
Quarter: 2005Q4

REPORT INFORMATION
  Report Type: 
  Country: None (occurrence: None)
  Receive Date: 20051017
  Receipt Date: 20050914
  Transmission Date: 20060501
  Serious: Yes (Hospitalization)
  Sender: FDA-Public Use
  Company Number: 2005RR-00857

PATIENT
  Age: 76 Year
  Sex: Male
  Weight: 98 kg

DRUGS (13)
  1. ASPIRIN [Suspect]
     Indication: PROPHYLAXIS
     Dosage: 75 MG, ORAL
     Route: 048
     Dates: start: 20030201, end: 20050824
  2. DIHYDROCODEINE [Suspect]
     Indication: PAIN
     Dosage: 60 MG, TID, ORAL
     Route: 048
     Dates: start: 20050819, end: 20050823
  3. CORACTEN [Concomitant]
  4. ENALAPRIL MALEATE [Concomitant]
  5. LOSARTAN POTASSIUM [Concomitant]
  6. GLICLAZIDE [Concomitant]
  7. ATORVASTATIN [Concomitant]
  8. CARBAMAZEPINE [Concomitant]
  9. DOXAZOSIN [Concomitant]
  10. SERETIDE [Concomitant]
  11. OMEPRAZOLE [Concomitant]
  12. BENDROFLUMETHIAZIDE [Concomitant]
  13. LEVEMIR [Concomitant]

REACTIONS (4)
  - ANURIA [None]
  - CONSTIPATION [None]
  - HAEMATEMESIS [None]
  - OCCULT BLOOD POSITIVE [None]
